FAERS Safety Report 5669129-4 (Version None)
Quarter: 2008Q1

REPORT INFORMATION
  Report Type: 
  Country: None (occurrence: None)
  Receive Date: 20080317
  Receipt Date: 20080312
  Transmission Date: 20080703
  Serious: Yes (Death, Hospitalization)
  Sender: FDA-Public Use
  Company Number: DE-AVENTIS-200810602DE

PATIENT
  Age: 72 Year
  Sex: Male
  Weight: 75 kg

DRUGS (17)
  1. TAXOTERE [Suspect]
     Route: 042
     Dates: start: 20080215, end: 20080215
  2. PLAVIX [Concomitant]
     Indication: PERIPHERAL ARTERIAL OCCLUSIVE DISEASE
     Dosage: DOSE: 1-0-0
     Route: 048
  3. BLOPRESS PLUS [Concomitant]
     Dosage: DOSE: 16/12.5 MG 1-0-0
     Route: 048
  4. DIBLOCIN [Concomitant]
     Route: 048
  5. DIBLOCIN [Concomitant]
     Route: 048
  6. ATENOLOL [Concomitant]
     Dosage: DOSE: 1-0-1
     Route: 048
  7. CARMEN [Concomitant]
     Dosage: DOSE: 0-1-0
     Route: 048
  8. PHYSIOTENS [Concomitant]
     Dosage: DOSE: 1-0-1
     Route: 048
  9. ACCUPRO [Concomitant]
     Dosage: DOSE: 0-0-0-1
     Route: 048
  10. AMARYL [Concomitant]
     Indication: DIABETES MELLITUS
     Dosage: DOSE: 0-0-1
     Route: 048
  11. PANTOZOL                           /01263202/ [Concomitant]
     Dosage: DOSE: 1-0-0
     Route: 048
  12. SYMBICORT [Concomitant]
     Indication: CHRONIC OBSTRUCTIVE PULMONARY DISEASE
     Dosage: DOSE: 0-0-1 STROKES
     Route: 055
  13. THEOPHYLLINE [Concomitant]
     Indication: CHRONIC OBSTRUCTIVE PULMONARY DISEASE
     Dosage: DOSE: 0-0-1
     Route: 048
  14. AUGMENTIN '125' [Concomitant]
     Indication: URINARY TRACT INFECTION
     Route: 042
  15. METRONIDAZOLE [Concomitant]
     Route: 048
  16. FILGRASTIM [Concomitant]
     Indication: LEUKOPENIA
     Dosage: DOSE QUANTITY: 30; DAILY DOSE UNIT: MEGAUNITS
     Route: 058
  17. LOPEDIUM [Concomitant]
     Dosage: DOSE: 20 SEVERAL TIMES
     Route: 048

REACTIONS (3)
  - DIARRHOEA [None]
  - INTESTINAL INFARCTION [None]
  - LEUKOPENIA [None]
